FAERS Safety Report 5231632-9 (Version None)
Quarter: 2007Q1

REPORT INFORMATION
  Report Type: 
  Country: None (occurrence: None)
  Receive Date: 20070206
  Receipt Date: 20070125
  Transmission Date: 20070707
  Serious: No
  Sender: FDA-Public Use
  Company Number: FR-ELI_LILLY_AND_COMPANY-FR200609007244

PATIENT
  Age: 71 Year
  Sex: Female
  Weight: 54 kg

DRUGS (8)
  1. AGYRAX [Concomitant]
     Indication: VERTIGO
     Dosage: 25 MG, UNK
     Route: 048
     Dates: start: 20050101
  2. SERESTA [Concomitant]
     Indication: ANXIETY
     Dosage: 50 MG, DAILY (1/D)
     Route: 048
     Dates: start: 20020101
  3. LIPANTHYL [Concomitant]
     Indication: HYPERCHOLESTEROLAEMIA
     Dosage: 160 MG, DAILY (1/D)
     Route: 048
     Dates: start: 20000101
  4. MODURETIC 5-50 [Concomitant]
     Indication: HYPERTENSION
     Dosage: 1 D/F, DAILY (1/D)
     Route: 048
     Dates: start: 20020101
  5. ACETAMINOPHEN [Concomitant]
     Indication: PAIN
     Dosage: 2 G, DAILY (1/D)
     Route: 048
     Dates: start: 20060116
  6. DENSICAL [Concomitant]
     Indication: OSTEOPOROSIS
     Dosage: 600 MG, DAILY (1/D)
  7. FORTEO [Suspect]
     Indication: OSTEOPOROSIS
     Dosage: 20 UG, DAILY (1/D)
     Route: 058
     Dates: start: 20060117
  8. FORTEO [Suspect]
     Dosage: 20 UG, DAILY (1/D)
     Route: 058

REACTIONS (1)
  - GASTRITIS [None]
